FAERS Safety Report 5805979-9 (Version None)
Quarter: 2008Q3

REPORT INFORMATION
  Report Type: 
  Country: None (occurrence: None)
  Receive Date: 20080710
  Receipt Date: 20080702
  Transmission Date: 20090109
  Serious: Yes (Other)
  Sender: FDA-Public Use
  Company Number: A0736783A

PATIENT
  Sex: Male

DRUGS (1)
  1. PAXIL [Suspect]

REACTIONS (5)
  - ADVERSE EVENT [None]
  - AGGRESSION [None]
  - AGITATION [None]
  - FEELING ABNORMAL [None]
  - PERSONALITY CHANGE [None]
